FAERS Safety Report 7450136-6 (Version None)
Quarter: 2011Q2

REPORT INFORMATION
  Report Type: 
  Country: None (occurrence: None)
  Receive Date: 20110428
  Receipt Date: 20110428
  Transmission Date: 20111010
  Serious: Yes (Hospitalization)
  Sender: FDA-Public Use
  Company Number: None

PATIENT
  Sex: Male

DRUGS (2)
  1. MELPHALAN HYDROCHLORIDE [Suspect]
  2. CELLCEPT [Suspect]

REACTIONS (1)
  - PULMONARY MYCOSIS [None]
